FAERS Safety Report 7073593-6 (Version None)
Quarter: 2010Q4

REPORT INFORMATION
  Report Type: 
  Country: None (occurrence: None)
  Receive Date: 20101029
  Receipt Date: 20101019
  Transmission Date: 20110411
  Serious: Yes (Other)
  Sender: FDA-Public Use
  Company Number: ES-PAR PHARMACEUTICAL, INC-2010SCPR002253

PATIENT
  Age: 54 Year
  Sex: Female
  Weight: 68 kg

DRUGS (6)
  1. PROPRANOLOL HYDROCHLORIDE [Suspect]
     Indication: SUPRAVENTRICULAR TACHYCARDIA
     Dosage: 20 MG, THREE TIMES DAILY
     Route: 048
  2. PROPRANOLOL HYDROCHLORIDE [Suspect]
     Dosage: 20 MG, BID
     Route: 048
  3. PEGINTERFERON ALFA-2A [Suspect]
     Indication: HEPATITIS C
     Dosage: 180 MCG, WEEKLY
     Route: 058
  4. PEGINTERFERON ALFA-2A [Suspect]
     Indication: HEPATIC FIBROSIS
  5. RIBAVIRIN [Suspect]
     Indication: HEPATITIS C
     Dosage: 1000 MG, DAILY
     Route: 048
  6. RIBAVIRIN [Suspect]
     Indication: HEPATIC FIBROSIS

REACTIONS (1)
  - ANGIOEDEMA [None]
